FAERS Safety Report 17911674 (Version 5)
Quarter: 2020Q4

REPORT INFORMATION
  Report Type: Spontaneous
  Country: US (occurrence: US)
  Receive Date: 20200618
  Receipt Date: 20201203
  Transmission Date: 20210113
  Serious: Yes (Hospitalization)
  Sender: FDA-Public Use
  Company Number: US-PFIZER INC-2020236277

PATIENT
  Age: 61 Year
  Sex: Female
  Weight: 96.15 kg

DRUGS (13)
  1. CITRACAL-D [Concomitant]
     Active Substance: CALCIUM CITRATE\CHOLECALCIFEROL
     Dosage: 250 MG
  2. FUROSEMIDE. [Concomitant]
     Active Substance: FUROSEMIDE
     Dosage: 20 MG
  3. ZOLEDRONIC ACID [Concomitant]
     Active Substance: ZOLEDRONIC ACID
     Dosage: UNK (ZOLEDRONIC ACID 4 MG/5)
  4. FULVESTRANT. [Concomitant]
     Active Substance: FULVESTRANT
     Dosage: 250 MG
  5. CALCIUM CARBONATE. [Concomitant]
     Active Substance: CALCIUM CARBONATE
     Dosage: UNK
  6. RETIN-A MICRO [Concomitant]
     Active Substance: TRETINOIN
     Dosage: 0.1 %
  7. ZYRTEC [Concomitant]
     Active Substance: CETIRIZINE HYDROCHLORIDE
     Dosage: 10 MG
  8. ACZONE [Concomitant]
     Active Substance: DAPSONE
     Dosage: 5 %
  9. VITAMIN C [Concomitant]
     Active Substance: ASCORBIC ACID
     Dosage: UNK
  10. IBRANCE [Suspect]
     Active Substance: PALBOCICLIB
     Dosage: 100 MG, CYCLIC (1 DAILY FOR 21 DAYS))
     Dates: start: 20200528
  11. POTASSIUM CHLORIDE. [Concomitant]
     Active Substance: POTASSIUM CHLORIDE
     Dosage: 10 MEQ
  12. IBRANCE [Suspect]
     Active Substance: PALBOCICLIB
     Indication: BREAST CANCER FEMALE
     Dosage: 100 MG, CYCLIC (1 DAILY FOR 21 DAYS)
     Route: 048
     Dates: start: 20200528
  13. VITAMIN D3 [Concomitant]
     Active Substance: CHOLECALCIFEROL
     Dosage: 25 UG

REACTIONS (6)
  - White blood cell count decreased [Unknown]
  - Pruritus [Unknown]
  - Dyspepsia [Unknown]
  - Increased appetite [Unknown]
  - Vulvovaginal dryness [Unknown]
  - Thrombosis [Unknown]

NARRATIVE: CASE EVENT DATE: 202005
